FAERS Safety Report 25765221 (Version 1)
Quarter: 2025Q3

REPORT INFORMATION
  Report Type: Spontaneous
  Country: RU (occurrence: RU)
  Receive Date: 20250905
  Receipt Date: 20250905
  Transmission Date: 20251021
  Serious: Yes (Other)
  Sender: RANBAXY
  Company Number: RU-SUN PHARMACEUTICAL INDUSTRIES LTD-2025R1-524559

PATIENT
  Age: 45 Year
  Sex: Female

DRUGS (1)
  1. CIPROFLOXACIN\TINIDAZOLE [Suspect]
     Active Substance: CIPROFLOXACIN\TINIDAZOLE
     Indication: Inflammation
     Dosage: UNK, BID (MORNING AND EVENING)
     Route: 065
     Dates: start: 20250723, end: 20250728

REACTIONS (2)
  - Diarrhoea haemorrhagic [Unknown]
  - Purulent discharge [Not Recovered/Not Resolved]

NARRATIVE: CASE EVENT DATE: 20250730
